FAERS Safety Report 7278829-4 (Version None)
Quarter: 2011Q1

REPORT INFORMATION
  Report Type: 
  Country: None (occurrence: None)
  Receive Date: 20110207
  Receipt Date: 20110127
  Transmission Date: 20110831
  Serious: Yes (Other)
  Sender: FDA-Public Use
  Company Number: DE-JNJFOC-20110106880

PATIENT
  Sex: Female
  Weight: 78 kg

DRUGS (15)
  1. CAELYX [Suspect]
     Indication: BREAST CANCER METASTATIC
     Dosage: CYCLE 1
     Route: 042
  2. COTRIM [Concomitant]
     Dosage: MONDAY/WEDNESDAY/FRIDAY 1-0-0
     Route: 065
  3. VITAMIN B6 [Concomitant]
     Route: 065
  4. CAELYX [Suspect]
     Dosage: CYCLE 1
     Route: 042
  5. TOPAMAX [Concomitant]
     Route: 048
  6. DEXAMETHASONE SODIUM POSPHATE [Concomitant]
     Route: 048
  7. DEXAMETHASONE SODIUM POSPHATE [Concomitant]
     Route: 048
  8. IDEOS [Concomitant]
     Route: 065
  9. CARMEN [Concomitant]
     Route: 065
  10. CAELYX [Suspect]
     Dosage: CYCLE 2
     Route: 042
  11. PANTOZOL [Concomitant]
     Route: 065
  12. AMPHOTERICIN B [Concomitant]
     Dosage: 4 X 2 DROPPER
     Route: 065
  13. LEVOTHYROXINE SODIUM [Concomitant]
     Route: 065
  14. MCP [Concomitant]
     Indication: NAUSEA
     Route: 048
  15. DELIX PLUS [Concomitant]
     Dosage: 5MG / 12.5MG    1/2-0-0
     Route: 065

REACTIONS (1)
  - SKIN TOXICITY [None]
